FAERS Safety Report 20019602 (Version 6)
Quarter: 2022Q2

REPORT INFORMATION
  Report Type: Report from Study
  Country: US (occurrence: US)
  Receive Date: 20211101
  Receipt Date: 20220419
  Transmission Date: 20220721
  Serious: Yes (Hospitalization, Other)
  Sender: FDA-Public Use
  Company Number: US-BoehringerIngelheim-2021-BI-112706

PATIENT
  Age: 68 Year
  Sex: Female

DRUGS (9)
  1. OFEV [Suspect]
     Active Substance: NINTEDANIB
     Indication: Idiopathic pulmonary fibrosis
     Route: 048
     Dates: start: 20210621
  2. OFEV [Suspect]
     Active Substance: NINTEDANIB
     Indication: Pulmonary arterial hypertension
     Dosage: 150MG BY MOUTH TWICE DAILY
     Route: 048
     Dates: start: 20210624, end: 20220414
  3. TYVASO [Concomitant]
     Active Substance: TREPROSTINIL
     Indication: Pulmonary arterial hypertension
     Dosage: 3 BREATHS ?UNIT DOSE: 0.6
     Route: 055
     Dates: start: 20210709, end: 202108
  4. ORENITRAM ER [Concomitant]
     Indication: Pulmonary arterial hypertension
     Route: 048
     Dates: start: 20210928
  5. ORENITRAM ER [Concomitant]
     Route: 048
     Dates: start: 20210929
  6. ORENITRAM ER [Concomitant]
     Route: 048
  7. ORENITRAM ER [Concomitant]
  8. ORENITRAM ER [Concomitant]
     Route: 048
     Dates: start: 202109
  9. OREN [Concomitant]
     Indication: Pulmonary arterial hypertension
     Route: 048
     Dates: start: 20210929

REACTIONS (15)
  - Dyspnoea [Recovering/Resolving]
  - Headache [Recovering/Resolving]
  - Haemoptysis [Recovering/Resolving]
  - Diarrhoea [Not Recovered/Not Resolved]
  - Vomiting [Unknown]
  - Nausea [Unknown]
  - Dysgeusia [Unknown]
  - Oxygen saturation decreased [Unknown]
  - Productive cough [Unknown]
  - Nausea [Unknown]
  - Abdominal pain upper [Unknown]
  - Memory impairment [Unknown]
  - Abdominal discomfort [Not Recovered/Not Resolved]
  - Hypersensitivity [Recovering/Resolving]
  - Pain [Not Recovered/Not Resolved]

NARRATIVE: CASE EVENT DATE: 20211019
